FAERS Safety Report 10494670 (Version 1)
Quarter: 2014Q4

REPORT INFORMATION
  Report Type: Spontaneous
  Country: CN (occurrence: None)
  Receive Date: 20141001
  Receipt Date: 20141001
  Transmission Date: 20150528
  Serious: Yes (Hospitalization)
  Sender: FDA-Public Use
  Company Number: CN-2014-1718

PATIENT
  Age: 46 Year
  Sex: Female
  Weight: 60 kg

DRUGS (1)
  1. NAVELBINE [Suspect]
     Active Substance: VINORELBINE TARTRATE
     Indication: BREAST CANCER METASTATIC
     Route: 041
     Dates: start: 20140408, end: 20140408

REACTIONS (7)
  - Electrocardiogram ST segment abnormal [None]
  - Transaminases increased [None]
  - Hypokalaemia [None]
  - Ileus paralytic [None]
  - Leukopenia [None]
  - Overdose [None]
  - Hyponatraemia [None]

NARRATIVE: CASE EVENT DATE: 20140414
